FAERS Safety Report 8055962-0 (Version None)
Quarter: 2012Q1

REPORT INFORMATION
  Report Type: 
  Country: None (occurrence: None)
  Receive Date: 20120119
  Receipt Date: 20111114
  Transmission Date: 20120608
  Serious: Yes (Hospitalization, Disabling, Other)
  Sender: FDA-Public Use
  Company Number: CA-ROCHE-GNE284798

PATIENT
  Sex: Male

DRUGS (10)
  1. LEVAQUIN [Concomitant]
     Indication: PRODUCT USED FOR UNKNOWN INDICATION
  2. OMALIZUMAB [Suspect]
     Route: 058
     Dates: start: 20100208
  3. PREDNISONE TAB [Concomitant]
     Indication: PRODUCT USED FOR UNKNOWN INDICATION
  4. DABIGATRAN ETEXILATE [Concomitant]
  5. OMALIZUMAB [Suspect]
     Route: 058
     Dates: start: 20091130
  6. SYMBICORT [Concomitant]
  7. OMALIZUMAB [Suspect]
     Indication: ASTHMA
     Route: 058
     Dates: start: 20050803
  8. METFORMIN HCL [Concomitant]
  9. OMALIZUMAB [Suspect]
     Route: 058
     Dates: start: 20091116
  10. MICARDIS [Concomitant]

REACTIONS (12)
  - CARDIAC DISORDER [None]
  - ATRIAL FIBRILLATION [None]
  - LOWER RESPIRATORY TRACT INFECTION [None]
  - FATIGUE [None]
  - INFLUENZA [None]
  - INJECTION SITE MASS [None]
  - SINUSITIS [None]
  - INJECTION SITE HAEMATOMA [None]
  - DRUG ADMINISTRATION ERROR [None]
  - BLOOD PRESSURE INCREASED [None]
  - PNEUMONIA [None]
  - INJECTION SITE ERYTHEMA [None]
